FAERS Safety Report 13055440 (Version 1)
Quarter: 2016Q4

REPORT INFORMATION
  Report Type: Spontaneous
  Country: IR (occurrence: IR)
  Receive Date: 20161222
  Receipt Date: 20161222
  Transmission Date: 20170207
  Serious: Yes (Death)
  Sender: FDA-Public Use
  Company Number: IR-BIOMARINAP-IR-2016-112236

PATIENT
  Age: 7 Year
  Sex: Male

DRUGS (2)
  1. ALDURAZYME [Suspect]
     Active Substance: LARONIDASE
     Indication: MUCOPOLYSACCHARIDOSIS I
     Dosage: 100 IU/KG, UNK
     Route: 042
  2. ALDURAZYME [Suspect]
     Active Substance: LARONIDASE
     Dosage: 100 IU/KG, UNK
     Route: 037

REACTIONS (2)
  - Product use issue [Unknown]
  - Respiratory tract infection [Fatal]
